FAERS Safety Report 7638806-8 (Version None)
Quarter: 2011Q3

REPORT INFORMATION
  Report Type: 
  Country: None (occurrence: None)
  Receive Date: 20110727
  Receipt Date: 20110713
  Transmission Date: 20111222
  Serious: Yes (Death, Hospitalization, Other)
  Sender: FDA-Public Use
  Company Number: US-ELI_LILLY_AND_COMPANY-US201004001679

PATIENT
  Sex: Female

DRUGS (4)
  1. FORTEO [Suspect]
     Indication: OSTEOPOROSIS
     Dosage: 20 UG, DAILY (1/D)
     Dates: start: 20090701
  2. DIOVAN [Concomitant]
  3. FORTEO [Suspect]
     Dosage: 20 UG, DAILY (1/D)
     Route: 065
  4. CELEBREX [Concomitant]

REACTIONS (9)
  - MUSCULOSKELETAL PAIN [None]
  - PRURITUS [None]
  - PNEUMONIA [None]
  - ABASIA [None]
  - LOWER LIMB FRACTURE [None]
  - MOVEMENT DISORDER [None]
  - DEATH [None]
  - HYPOACUSIS [None]
  - GAIT DISTURBANCE [None]
